FAERS Safety Report 12760133 (Version 1)
Quarter: 2016Q3

REPORT INFORMATION
  Report Type: Spontaneous
  Country: US (occurrence: US)
  Receive Date: 20160919
  Receipt Date: 20160919
  Transmission Date: 20161109
  Serious: No
  Sender: FDA-Public Use
  Company Number: US-BAUSCH-BL-2016-021629

PATIENT
  Sex: Female

DRUGS (2)
  1. ADDYI [Suspect]
     Active Substance: FLIBANSERIN
     Indication: PRODUCT USED FOR UNKNOWN INDICATION
     Route: 065
  2. ADDYI [Suspect]
     Active Substance: FLIBANSERIN
     Dosage: 1/2 TABLET DAILY AT NIGHT
     Route: 065
     Dates: start: 201608

REACTIONS (2)
  - Blood pressure decreased [Unknown]
  - Sedation [Unknown]
